FAERS Safety Report 26132985 (Version 1)
Quarter: 2025Q4

REPORT INFORMATION
  Report Type: Spontaneous
  Country: US (occurrence: US)
  Receive Date: 20251209
  Receipt Date: 20251209
  Transmission Date: 20260118
  Serious: Yes (Other)
  Sender: SANOFI AVENTIS
  Company Number: US-SA-2025SA362895

PATIENT
  Sex: Male
  Weight: 161.02 kg

DRUGS (1)
  1. DUPIXENT [Suspect]
     Active Substance: DUPILUMAB
     Indication: Asthma
     Dosage: 300 MG, QOW
     Route: 058

REACTIONS (5)
  - Pneumonia [Not Recovered/Not Resolved]
  - Urinary retention [Unknown]
  - Muscular weakness [Unknown]
  - Gait disturbance [Unknown]
  - Dyspnoea [Unknown]
